FAERS Safety Report 19734413 (Version 1)
Quarter: 2021Q3

REPORT INFORMATION
  Report Type: Spontaneous
  Country: US (occurrence: US)
  Receive Date: 20210824
  Receipt Date: 20210824
  Transmission Date: 20211014
  Serious: No
  Sender: FDA-Public Use
  Company Number: US-SA-2021SA276812

PATIENT
  Age: 66 Year
  Sex: Female

DRUGS (7)
  1. DUPIXENT [Suspect]
     Active Substance: DUPILUMAB
     Indication: DERMATITIS ATOPIC
     Dosage: 300 MG, QOW
     Route: 058
     Dates: start: 20210401
  2. FUROSEMIDE. [Concomitant]
     Active Substance: FUROSEMIDE
  3. LOSARTAN. [Concomitant]
     Active Substance: LOSARTAN
  4. CLOBETASOL [Concomitant]
     Active Substance: CLOBETASOL
  5. TERBINAFINE. [Concomitant]
     Active Substance: TERBINAFINE
  6. SIMVASTATIN. [Concomitant]
     Active Substance: SIMVASTATIN
  7. APAP [Concomitant]
     Active Substance: ACETAMINOPHEN

REACTIONS (6)
  - Rash [Unknown]
  - Muscular weakness [Unknown]
  - Skin fissures [Unknown]
  - Product dose omission issue [Unknown]
  - Skin haemorrhage [Unknown]
  - Pain [Unknown]

NARRATIVE: CASE EVENT DATE: 202107
